FAERS Safety Report 17900269 (Version 4)
Quarter: 2020Q4

REPORT INFORMATION
  Report Type: Spontaneous
  Country: US (occurrence: US)
  Receive Date: 20200616
  Receipt Date: 20201103
  Transmission Date: 20210113
  Serious: Yes (Other)
  Sender: FDA-Public Use
  Company Number: US-PFIZER INC-2020230923

PATIENT
  Age: 69 Year
  Sex: Female

DRUGS (1)
  1. XELJANZ XR [Suspect]
     Active Substance: TOFACITINIB CITRATE
     Dosage: 11 MG, UNK
     Dates: start: 202004

REACTIONS (14)
  - Bone density decreased [Unknown]
  - Gait disturbance [Unknown]
  - Musculoskeletal disorder [Unknown]
  - Cushingoid [Unknown]
  - Abdominal discomfort [Unknown]
  - Fall [Unknown]
  - Contusion [Unknown]
  - Pain [Unknown]
  - Purpura [Unknown]
  - Joint swelling [Unknown]
  - Sensitivity to weather change [Unknown]
  - Haemorrhage subcutaneous [Unknown]
  - Peripheral swelling [Unknown]
  - Product dose omission issue [Unknown]

NARRATIVE: CASE EVENT DATE: 2020
